FAERS Safety Report 9447691 (Version 2)
Quarter: 2013Q4

REPORT INFORMATION
  Report Type: Spontaneous
  Country: US (occurrence: US)
  Receive Date: 20130808
  Receipt Date: 20131030
  Transmission Date: 20140711
  Serious: Yes (Hospitalization)
  Sender: FDA-Public Use
  Company Number: US-BAYER-2013-095172

PATIENT
  Age: 44 Year
  Sex: Female
  Weight: 63.49 kg

DRUGS (2)
  1. YAZ [Suspect]
     Indication: CONTRACEPTION
     Dosage: UNK
     Dates: start: 201110, end: 201202
  2. YAZ [Suspect]
     Indication: ACNE

REACTIONS (8)
  - Retinal vein occlusion [None]
  - Retinal injury [None]
  - Macular fibrosis [None]
  - Visual impairment [None]
  - Photophobia [None]
  - Eye inflammation [None]
  - Visual impairment [None]
  - Mental disorder [None]
